FAERS Safety Report 10767190 (Version 1)
Quarter: 2015Q1

REPORT INFORMATION
  Report Type: Spontaneous
  Country: GB (occurrence: GB)
  Receive Date: 20150205
  Receipt Date: 20150205
  Transmission Date: 20150721
  Serious: Yes (Hospitalization, Other)
  Sender: FDA-Public Use
  Company Number: PHFR2015GB001125

PATIENT
  Age: 50 Year
  Sex: Female
  Weight: 71 kg

DRUGS (1)
  1. ARTEMETHER + BENFLUMETOL [Suspect]
     Active Substance: ARTEMETHER\LUMEFANTRINE
     Indication: MALARIA PROPHYLAXIS
     Route: 048

REACTIONS (2)
  - Haematuria [Recovered/Resolved]
  - Haemoglobin decreased [Recovered/Resolved]
